FAERS Safety Report 18315226 (Version 1)
Quarter: 2020Q3

REPORT INFORMATION
  Report Type: Report from Study
  Country: DE (occurrence: DE)
  Receive Date: 20200926
  Receipt Date: 20200926
  Transmission Date: 20201103
  Serious: Yes (Other)
  Sender: FDA-Public Use
  Company Number: NVSC2020DE261622

PATIENT
  Sex: Male
  Weight: 88 kg

DRUGS (20)
  1. COSENTYX [Suspect]
     Active Substance: SECUKINUMAB
     Dosage: 300 MG, (ONCE)
     Route: 065
     Dates: start: 20190826, end: 20190826
  2. COSENTYX [Suspect]
     Active Substance: SECUKINUMAB
     Dosage: 300 MG, (ONCE)
     Route: 065
     Dates: start: 20190701, end: 20190701
  3. COSENTYX [Suspect]
     Active Substance: SECUKINUMAB
     Dosage: 300 MG, (ONCE)
     Route: 065
     Dates: start: 20191125, end: 20191125
  4. COSENTYX [Suspect]
     Active Substance: SECUKINUMAB
     Dosage: 300 MG, (ONCE)
     Route: 065
     Dates: start: 20200622, end: 20200622
  5. VIGANTOL [Concomitant]
     Indication: VITAMIN D DEFICIENCY
     Dosage: 2000 IU, QD
     Route: 048
     Dates: start: 20180215
  6. COSENTYX [Suspect]
     Active Substance: SECUKINUMAB
     Dosage: 300 MG, (ONCE)
     Route: 065
     Dates: start: 20190729, end: 20190729
  7. COSENTYX [Suspect]
     Active Substance: SECUKINUMAB
     Dosage: 300 MG, (ONCE)
     Route: 065
     Dates: start: 20191021, end: 20191021
  8. COSENTYX [Suspect]
     Active Substance: SECUKINUMAB
     Dosage: 300 MG, (ONCE)
     Route: 065
     Dates: start: 20191230, end: 20191230
  9. COSENTYX [Suspect]
     Active Substance: SECUKINUMAB
     Dosage: 300 MG, (ONCE)
     Route: 065
     Dates: start: 20190624, end: 20190624
  10. COSENTYX [Suspect]
     Active Substance: SECUKINUMAB
     Dosage: 300 MG, (ONCE)
     Route: 065
     Dates: start: 20200203, end: 20200203
  11. COSENTYX [Suspect]
     Active Substance: SECUKINUMAB
     Dosage: 300 MG, (ONCE)
     Route: 065
     Dates: start: 20200427, end: 20200427
  12. COSENTYX [Suspect]
     Active Substance: SECUKINUMAB
     Dosage: 300 MG, (ONCE)
     Route: 065
     Dates: start: 20190617, end: 20190617
  13. COSENTYX [Suspect]
     Active Substance: SECUKINUMAB
     Dosage: 300 MG, (ONCE)
     Route: 065
     Dates: start: 20190923, end: 20190923
  14. COSENTYX [Suspect]
     Active Substance: SECUKINUMAB
     Indication: PSORIATIC ARTHROPATHY
     Dosage: 150 MG, (ONCE)
     Route: 065
     Dates: start: 20190603, end: 20190603
  15. COSENTYX [Suspect]
     Active Substance: SECUKINUMAB
     Dosage: 300 MG, (ONCE)
     Route: 065
     Dates: start: 20200720
  16. COSENTYX [Suspect]
     Active Substance: SECUKINUMAB
     Dosage: 300 MG, (ONCE)
     Route: 065
     Dates: start: 20190610, end: 20190610
  17. COSENTYX [Suspect]
     Active Substance: SECUKINUMAB
     Dosage: 300 MG, ONCE/SINGLE
     Route: 065
     Dates: start: 20200302
  18. COSENTYX [Suspect]
     Active Substance: SECUKINUMAB
     Dosage: 300 MG, (ONCE)
     Route: 065
     Dates: start: 20200330, end: 20200330
  19. COSENTYX [Suspect]
     Active Substance: SECUKINUMAB
     Dosage: 300 MG, (ONCE)
     Route: 065
     Dates: start: 20200525, end: 20200525
  20. OMEPRAZOLE. [Concomitant]
     Active Substance: OMEPRAZOLE
     Indication: GASTROOESOPHAGEAL REFLUX DISEASE
     Dosage: 20 MG, QD
     Route: 048
     Dates: start: 20180215

REACTIONS (1)
  - Erysipelas [Recovered/Resolved]

NARRATIVE: CASE EVENT DATE: 202007
